FAERS Safety Report 8900479 (Version 1)
Quarter: 2012Q4

REPORT INFORMATION
  Report Type: 
  Country: US (occurrence: US)
  Receive Date: 20121108
  Receipt Date: 20121108
  Transmission Date: 20130627
  Serious: Yes (Hospitalization, Other)
  Sender: FDA-Public Use
  Company Number: US-AMGEN-USASP2012036774

PATIENT
  Age: 73 Year
  Sex: Female
  Weight: 77.55 kg

DRUGS (1)
  1. ENBREL [Suspect]
     Indication: RHEUMATOID ARTHRITIS
     Dosage: UNK
     Dates: start: 20120301, end: 201203

REACTIONS (2)
  - Appendicitis [Not Recovered/Not Resolved]
  - Tenderness [Not Recovered/Not Resolved]
